APPROVED DRUG PRODUCT: LOTRIMIN
Active Ingredient: CLOTRIMAZOLE
Strength: 1%
Dosage Form/Route: LOTION;TOPICAL
Application: N018813 | Product #001
Applicant: SCHERING CORP SUB SCHERING PLOUGH CORP
Approved: Feb 17, 1984 | RLD: No | RS: No | Type: DISCN